FAERS Safety Report 7546448-8 (Version None)
Quarter: 2011Q2

REPORT INFORMATION
  Report Type: 
  Country: None (occurrence: None)
  Receive Date: 20110614
  Receipt Date: 20110531
  Transmission Date: 20111010
  Serious: Yes (Other)
  Sender: FDA-Public Use
  Company Number: CA-JNJFOC-20110601299

PATIENT
  Sex: Male
  Weight: 77 kg

DRUGS (4)
  1. AZATHIOPRINE [Concomitant]
     Route: 048
  2. ZOLOFT [Concomitant]
     Route: 048
  3. VITAMIN B-12 [Concomitant]
  4. REMICADE [Suspect]
     Indication: CROHN'S DISEASE
     Route: 042

REACTIONS (6)
  - LOCAL SWELLING [None]
  - BLISTER [None]
  - GOUT [None]
  - OEDEMA PERIPHERAL [None]
  - NIGHT SWEATS [None]
  - ARTHRALGIA [None]
